FAERS Safety Report 11256031 (Version 2)
Quarter: 2015Q3

REPORT INFORMATION
  Report Type: Spontaneous
  Country: BR (occurrence: BR)
  Receive Date: 20150709
  Receipt Date: 20150826
  Transmission Date: 20151125
  Serious: Yes (Other)
  Sender: FDA-Public Use
  Company Number: BR-AUROBINDO-AUR-APL-2015-05891

PATIENT
  Age: 33 Year
  Sex: Male
  Weight: 82 kg

DRUGS (2)
  1. OMEPRAZOL                          /00661201/ [Concomitant]
     Active Substance: OMEPRAZOLE
     Indication: PRODUCT USED FOR UNKNOWN INDICATION
     Dosage: 20 MG, UNK
     Route: 065
  2. CITALOPRAM [Suspect]
     Active Substance: CITALOPRAM HYDROBROMIDE
     Indication: PHOBIA
     Dosage: 20 MG, UNK
     Route: 065
     Dates: start: 20150623

REACTIONS (7)
  - Depressed mood [Recovering/Resolving]
  - Paraesthesia [Recovering/Resolving]
  - Tremor [Recovering/Resolving]
  - Headache [Recovering/Resolving]
  - Phobia [Recovering/Resolving]
  - Vision blurred [Recovering/Resolving]
  - Dizziness [Recovering/Resolving]

NARRATIVE: CASE EVENT DATE: 20150626
